FAERS Safety Report 8080758-3 (Version None)
Quarter: 2012Q1

REPORT INFORMATION
  Report Type: 
  Country: None (occurrence: None)
  Receive Date: 20120130
  Receipt Date: 20120125
  Transmission Date: 20120608
  Serious: Yes (Hospitalization)
  Sender: FDA-Public Use
  Company Number: PHHY2011JP097137

PATIENT
  Age: 76 Year
  Sex: Male

DRUGS (6)
  1. BACLOFEN [Suspect]
     Indication: TRIGEMINAL NEURALGIA
     Dosage: 45 MG, DAILY
     Route: 048
     Dates: end: 20110615
  2. GABAPENTIN [Concomitant]
     Dosage: 1200 MG, DAILY
     Route: 048
     Dates: start: 20110524
  3. CARBAMAZEPINE [Suspect]
     Dosage: 300 MG, DAILY
     Route: 048
  4. CARBAMAZEPINE [Suspect]
     Indication: TRIGEMINAL NEURALGIA
     Dosage: 500 MG, DAILY
     Route: 048
  5. BACLOFEN [Suspect]
     Indication: PAIN
  6. GOREISAN [Concomitant]

REACTIONS (7)
  - LACUNAR INFARCTION [None]
  - VOMITING [None]
  - DEHYDRATION [None]
  - DECREASED APPETITE [None]
  - MUSCULAR WEAKNESS [None]
  - DIZZINESS [None]
  - DRUG INEFFECTIVE [None]
